FAERS Safety Report 24654720 (Version 1)
Quarter: 2024Q4

REPORT INFORMATION
  Report Type: Spontaneous
  Country: US (occurrence: US)
  Receive Date: 20241122
  Receipt Date: 20241122
  Transmission Date: 20250115
  Serious: No
  Sender: NOVO NORDISK
  Company Number: US-NOVOPROD-1272068

PATIENT
  Sex: Male

DRUGS (1)
  1. FIASP [Suspect]
     Active Substance: INSULIN ASPART
     Indication: Diabetes mellitus
     Dosage: VARIES
     Route: 058

REACTIONS (5)
  - Asthenia [Not Recovered/Not Resolved]
  - Blood glucose increased [Unknown]
  - Injection site discolouration [Not Recovered/Not Resolved]
  - Liquid product physical issue [Unknown]
  - Liquid product physical issue [Unknown]
